FAERS Safety Report 6922683-4 (Version None)
Quarter: 2010Q3

REPORT INFORMATION
  Report Type: 
  Country: None (occurrence: None)
  Receive Date: 20100813
  Receipt Date: 20100809
  Transmission Date: 20110219
  Serious: Yes (Death, Hospitalization, Other)
  Sender: FDA-Public Use
  Company Number: PHFR2010GB01967

PATIENT
  Sex: Male

DRUGS (1)
  1. CLOZARIL [Suspect]
     Indication: SCHIZOPHRENIA
     Dosage: 200 MG, BID
     Route: 048
     Dates: start: 20070815

REACTIONS (7)
  - CARDIAC ARREST [None]
  - CHOLELITHIASIS [None]
  - FALL [None]
  - MALAISE [None]
  - PANCREATITIS [None]
  - VOMITING [None]
  - WALKING AID USER [None]
